FAERS Safety Report 25948706 (Version 1)
Quarter: 2025Q4

REPORT INFORMATION
  Report Type: Spontaneous
  Country: US (occurrence: US)
  Receive Date: 20251022
  Receipt Date: 20251022
  Transmission Date: 20260117
  Serious: Yes (Other)
  Sender: TEVA
  Company Number: US-TEVA-VS-3381616

PATIENT
  Age: 64 Year
  Sex: Female

DRUGS (2)
  1. TAMOXIFEN [Suspect]
     Active Substance: TAMOXIFEN
     Indication: Hormone suppression therapy
     Dosage: 10 MG EVERY OTHER DAY IN AM AFTER COFFEE ORALLY
     Route: 048
     Dates: start: 20251006, end: 20251010
  2. TAMOXIFEN [Suspect]
     Active Substance: TAMOXIFEN
     Indication: Hormone suppression therapy
     Dosage: 10 MG EVERY OTHER DAY IN AM AFTER COFFEE ORALLY
     Route: 048
     Dates: start: 20251006, end: 20251010

REACTIONS (4)
  - Hypertension [Recovered/Resolved]
  - Nausea [Recovered/Resolved]
  - Headache [Recovered/Resolved]
  - Dizziness [Recovering/Resolving]

NARRATIVE: CASE EVENT DATE: 20251008
